FAERS Safety Report 17899589 (Version 1)
Quarter: 2020Q2

REPORT INFORMATION
  Report Type: Spontaneous
  Country: US (occurrence: US)
  Receive Date: 20200616
  Receipt Date: 20200616
  Transmission Date: 20200714
  Serious: No
  Sender: FDA-Public Use
  Company Number: US-LEO PHARMA-330004

PATIENT
  Age: 79 Year
  Sex: Female

DRUGS (3)
  1. SKINOREN GEL [Suspect]
     Active Substance: AZELAIC ACID
     Indication: PAPULE
     Route: 061
  2. SKINOREN GEL [Suspect]
     Active Substance: AZELAIC ACID
     Indication: ACNE
  3. SKINOREN GEL [Suspect]
     Active Substance: AZELAIC ACID
     Indication: ERYTHEMA

REACTIONS (2)
  - Dry skin [Not Recovered/Not Resolved]
  - Inappropriate schedule of product administration [Unknown]

NARRATIVE: CASE EVENT DATE: 20200605
